FAERS Safety Report 10214023 (Version 1)
Quarter: 2014Q2

REPORT INFORMATION
  Report Type: Spontaneous
  Country: NO (occurrence: NO)
  Receive Date: 20140603
  Receipt Date: 20140603
  Transmission Date: 20141212
  Serious: Yes (Hospitalization)
  Sender: FDA-Public Use
  Company Number: NO-MYLANLABS-2014S1012437

PATIENT
  Age: 38 Year
  Sex: Female

DRUGS (8)
  1. CLOZAPINE [Suspect]
     Indication: BIPOLAR DISORDER
     Dosage: 50MG; INCREASED TO 250MG OVER 7 DAYS
     Route: 065
  2. CLOZAPINE [Suspect]
     Indication: OFF LABEL USE
     Dosage: 50MG; INCREASED TO 250MG OVER 7 DAYS
     Route: 065
  3. CLOZAPINE [Suspect]
     Indication: BIPOLAR DISORDER
     Dosage: 250MG
     Route: 065
  4. CLOZAPINE [Suspect]
     Indication: OFF LABEL USE
     Dosage: 250MG
     Route: 065
  5. LAMOTRIGINE [Concomitant]
     Indication: BIPOLAR DISORDER
     Dosage: 100 MGX1
     Route: 065
  6. VALPROATE [Concomitant]
     Indication: BIPOLAR DISORDER
     Dosage: 600 MGX1
     Route: 065
  7. VALPROATE [Concomitant]
     Indication: BIPOLAR DISORDER
     Dosage: 1200 MGX2
     Route: 065
  8. VALPROATE [Concomitant]
     Indication: BIPOLAR DISORDER
     Dosage: 900 MGX2
     Route: 065

REACTIONS (6)
  - Pyrexia [Recovered/Resolved]
  - Musculoskeletal stiffness [Recovered/Resolved]
  - Hallucination, visual [Recovered/Resolved]
  - Delirium [Recovered/Resolved]
  - Fatigue [Recovered/Resolved]
  - Depressed level of consciousness [Recovered/Resolved]
